FAERS Safety Report 25048621 (Version 2)
Quarter: 2025Q2

REPORT INFORMATION
  Report Type: Spontaneous
  Country: US (occurrence: US)
  Receive Date: 20250307
  Receipt Date: 20250401
  Transmission Date: 20250717
  Serious: No
  Sender: IDORSIA PHARMACEUTICALS
  Company Number: US-IDORSIA-009255-2025-US

PATIENT
  Age: 57 Year
  Sex: Female

DRUGS (8)
  1. QUVIVIQ [Suspect]
     Active Substance: DARIDOREXANT
     Indication: Insomnia
     Dosage: 50 MG, QD
     Route: 048
     Dates: start: 20250127
  2. TELMISARTAN [Concomitant]
     Active Substance: TELMISARTAN
  3. METOPROLOL [Concomitant]
     Active Substance: METOPROLOL
  4. ALLOPURINOL [Concomitant]
     Active Substance: ALLOPURINOL
  5. EZETIMIBE [Concomitant]
     Active Substance: EZETIMIBE
  6. CHLORTHALIDONE [Concomitant]
     Active Substance: CHLORTHALIDONE
  7. GLIPIZIDE [Concomitant]
     Active Substance: GLIPIZIDE
     Dosage: 5 MG, BID
  8. OMEPRAZOLE [Concomitant]
     Active Substance: OMEPRAZOLE
     Dosage: 40 MG, QD

REACTIONS (3)
  - Abnormal dreams [Recovering/Resolving]
  - Dizziness [Recovering/Resolving]
  - Poor quality sleep [Recovered/Resolved]

NARRATIVE: CASE EVENT DATE: 20250128
